FAERS Safety Report 9742864 (Version 1)
Quarter: 2013Q4

REPORT INFORMATION
  Report Type: Spontaneous
  Country: US (occurrence: US)
  Receive Date: 20131210
  Receipt Date: 20131210
  Transmission Date: 20140711
  Serious: No
  Sender: FDA-Public Use
  Company Number: US-PFIZER INC-2013349806

PATIENT
  Sex: Male

DRUGS (2)
  1. ADVIL [Suspect]
     Indication: PAIN
     Dosage: TWO TABLETS AT A TIME, FOUR TIMES DAY
     Dates: start: 20131119, end: 2013
  2. GABAPENTIN [Concomitant]
     Indication: POST HERPETIC NEURALGIA
     Dosage: UNK

REACTIONS (2)
  - Overdose [Unknown]
  - Pain [Not Recovered/Not Resolved]
